FAERS Safety Report 10216364 (Version 2)
Quarter: 2014Q2

REPORT INFORMATION
  Report Type: Spontaneous
  Country: US (occurrence: US)
  Receive Date: 20140604
  Receipt Date: 20140611
  Transmission Date: 20141212
  Serious: Yes (Hospitalization)
  Sender: FDA-Public Use
  Company Number: US-JNJFOC-20140601468

PATIENT
  Age: 81 Year
  Sex: Female

DRUGS (8)
  1. IMBRUVICA [Suspect]
     Indication: CHRONIC LYMPHOCYTIC LEUKAEMIA
     Route: 048
     Dates: start: 20140509
  2. LASIX [Concomitant]
  3. PROBIOTICS [Concomitant]
     Dosage: PROBITOCS NOS
  4. POTASSIUM [Concomitant]
  5. ASPIRIN [Concomitant]
  6. CENTRUM A-Z [Concomitant]
  7. COREG [Concomitant]
  8. FEMARA [Concomitant]

REACTIONS (4)
  - Cardiac failure congestive [Recovered/Resolved]
  - Constipation [Not Recovered/Not Resolved]
  - Depression [Not Recovered/Not Resolved]
  - Fatigue [Not Recovered/Not Resolved]
